FAERS Safety Report 17950495 (Version 1)
Quarter: 2020Q2

REPORT INFORMATION
  Report Type: Spontaneous
  Country: DE (occurrence: DE)
  Receive Date: 20200626
  Receipt Date: 20200626
  Transmission Date: 20200714
  Serious: Yes (Congenital Anomaly)
  Sender: FDA-Public Use
  Company Number: NVSC2020DE178877

PATIENT
  Sex: Female
  Weight: 1.18 kg

DRUGS (5)
  1. CITALOPRAM [Suspect]
     Active Substance: CITALOPRAM HYDROBROMIDE
     Indication: DEPRESSION
     Dosage: 20 MG, QD
     Route: 064
     Dates: start: 20190316, end: 20191015
  2. ONDANSETRON [Suspect]
     Active Substance: ONDANSETRON
     Indication: MORNING SICKNESS
     Dosage: 4 MG, BID
     Route: 064
     Dates: start: 20190520, end: 20191015
  3. VOMEX A [Suspect]
     Active Substance: DIMENHYDRINATE
     Indication: MORNING SICKNESS
     Dosage: 100 MG, BID
     Route: 064
     Dates: start: 20190506, end: 20191015
  4. SEDAPLUS [Concomitant]
     Active Substance: DOXYLAMINE SUCCINATE
     Indication: MORNING SICKNESS
     Dosage: 50 MG, QD
     Route: 064
     Dates: start: 20190702, end: 20190715
  5. ELEVIT [Concomitant]
     Active Substance: FOLIC ACID\IRON\MINERALS\VITAMINS
     Indication: PROPHYLAXIS OF NEURAL TUBE DEFECT
     Dosage: UNK
     Route: 064
     Dates: start: 20190316, end: 20191015

REACTIONS (2)
  - Congenital megaureter [Recovered/Resolved]
  - Foetal exposure during pregnancy [Unknown]
